FAERS Safety Report 4755053-8 (Version None)
Quarter: 2005Q3

REPORT INFORMATION
  Report Type: 
  Country: None (occurrence: None)
  Receive Date: 20050825
  Receipt Date: 20050812
  Transmission Date: 20060218
  Serious: Yes (Other)
  Sender: FDA-Public Use
  Company Number: 2005114661

PATIENT
  Age: 46 Year
  Sex: Male

DRUGS (1)
  1. FELDENE [Suspect]
     Indication: PAIN IN EXTREMITY
     Dosage: (20 MG, UNKNOWN), ORAL
     Route: 048
     Dates: start: 20050810, end: 20050810

REACTIONS (1)
  - HYPERSENSITIVITY [None]
